FAERS Safety Report 5220516-8 (Version None)
Quarter: 2007Q1

REPORT INFORMATION
  Report Type: 
  Country: None (occurrence: None)
  Receive Date: 20070126
  Receipt Date: 20070119
  Transmission Date: 20070707
  Serious: Yes (Hospitalization, Other)
  Sender: FDA-Public Use
  Company Number: AU-JNJFOC-20070105215

PATIENT
  Sex: Male

DRUGS (4)
  1. REMICADE [Suspect]
     Indication: COLITIS ULCERATIVE
     Route: 042
  2. PREDNISOLONE [Concomitant]
     Indication: COLITIS ULCERATIVE
  3. MESALAZINE [Concomitant]
     Indication: COLITIS ULCERATIVE
  4. MINOCYCLINE HYDROCHLORIDE [Concomitant]
     Indication: COLITIS ULCERATIVE

REACTIONS (6)
  - ANAEMIA [None]
  - BRAIN STEM INFARCTION [None]
  - CEREBELLAR INFARCTION [None]
  - HEADACHE [None]
  - HEMIPARESIS [None]
  - MALAISE [None]
